FAERS Safety Report 5907223-0 (Version None)
Quarter: 2008Q4

REPORT INFORMATION
  Report Type: 
  Country: None (occurrence: None)
  Receive Date: 20081003
  Receipt Date: 20080922
  Transmission Date: 20090506
  Serious: Yes (Hospitalization)
  Sender: FDA-Public Use
  Company Number: US-ROCHE-563361

PATIENT
  Sex: Female
  Weight: 72.1 kg

DRUGS (5)
  1. PEG-INTERFERON A-2A (RO 25-8310) [Suspect]
     Dosage: FORMULATION: PRE-FILLED SYRINGE
     Route: 065
     Dates: start: 20080309, end: 20080427
  2. PEG-INTERFERON A-2A (RO 25-8310) [Suspect]
     Route: 065
     Dates: start: 20080808
  3. RIBAVIRIN [Suspect]
     Route: 048
     Dates: start: 20080309, end: 20080427
  4. RIBAVIRIN [Suspect]
     Route: 048
     Dates: start: 20080808
  5. ATENOLOL [Concomitant]
     Indication: HYPERTENSION
     Route: 065

REACTIONS (8)
  - ANAEMIA [None]
  - ANOREXIA [None]
  - DYSGEUSIA [None]
  - FATIGUE [None]
  - NAUSEA [None]
  - NEUTROPENIA [None]
  - PALPITATIONS [None]
  - SYNCOPE [None]
